FAERS Safety Report 5602098-1 (Version None)
Quarter: 2008Q1

REPORT INFORMATION
  Report Type: 
  Country: None (occurrence: None)
  Receive Date: 20080125
  Receipt Date: 20080118
  Transmission Date: 20080703
  Serious: Yes (Other)
  Sender: FDA-Public Use
  Company Number: PHEH2007US14735

PATIENT
  Age: 55 Year
  Sex: Female

DRUGS (5)
  1. FEMARA [Suspect]
     Indication: BREAST CANCER
     Dosage: 2.5MG, QD
     Route: 065
     Dates: start: 20061226
  2. VITAMIN CAP [Concomitant]
     Dosage: UNK, QD
  3. ASPIRIN [Concomitant]
     Dosage: 81 MG, QD
  4. BIOTIN [Concomitant]
     Dosage: UNK, QD
  5. CALCIUM WITH VITAMIN D [Concomitant]
     Indication: OSTEOPENIA
     Dosage: UNK, QD

REACTIONS (6)
  - ARTHRALGIA [None]
  - MUSCULOSKELETAL STIFFNESS [None]
  - MYALGIA [None]
  - NIGHT BLINDNESS [None]
  - PAIN IN EXTREMITY [None]
  - VISUAL ACUITY REDUCED [None]
